FAERS Safety Report 26070415 (Version 1)
Quarter: 2025Q4

REPORT INFORMATION
  Report Type: Spontaneous
  Country: US (occurrence: None)
  Receive Date: 20251120
  Receipt Date: 20251120
  Transmission Date: 20260117
  Serious: Yes (Hospitalization)
  Sender: FDA-CTU
  Company Number: None

PATIENT
  Sex: Male

DRUGS (1)
  1. VYNDAMAX [Suspect]
     Active Substance: TAFAMIDIS
     Indication: Acquired ATTR amyloidosis
     Dosage: FREQUENCY : DAILY;?
     Dates: start: 20250729

REACTIONS (6)
  - Rotator cuff syndrome [None]
  - Dizziness postural [None]
  - Fatigue [None]
  - Heart rate irregular [None]
  - Dyspnoea [None]
  - Therapy interrupted [None]
